FAERS Safety Report 9312463 (Version 2)
Quarter: 2013Q3

REPORT INFORMATION
  Report Type: Spontaneous
  Country: US (occurrence: US)
  Receive Date: 20130528
  Receipt Date: 20130815
  Transmission Date: 20140515
  Serious: Yes (Hospitalization)
  Sender: FDA-Public Use
  Company Number: US-BAYER-2013-062796

PATIENT
  Age: 89 Year
  Sex: Male
  Weight: 83 kg

DRUGS (8)
  1. ALKA-SELTZER PLUS COLD + FLU FORMULA DAY/NIGHT LIQUID GEL COMBI DA [Suspect]
     Indication: NASOPHARYNGITIS
     Dosage: 1 DF, PRN
     Route: 048
     Dates: start: 201304, end: 201304
  2. ALKA-SELTZER PLUS COLD + FLU FORMULA DAY/NIGHT LIQUID GEL COMBI NI [Suspect]
     Indication: NASOPHARYNGITIS
     Dosage: 1 DF, PRN
     Route: 048
     Dates: start: 201304, end: 201304
  3. PLAVIX [Concomitant]
  4. BAYER ASPIRIN REGIMEN ADULT LOW STRENGTH [Concomitant]
     Dosage: UNK UNK, QD
  5. LASIX [Concomitant]
  6. POTASSIUM [POTASSIUM] [Concomitant]
  7. CENTRUM [MINERALS NOS,VITAMINS NOS] [Concomitant]
  8. PREDNISONE [Concomitant]

REACTIONS (10)
  - Loss of consciousness [Recovered/Resolved]
  - Mobility decreased [Recovered/Resolved]
  - Insomnia [Recovered/Resolved]
  - Aphagia [Recovered/Resolved]
  - Adverse drug reaction [Recovered/Resolved]
  - Bronchitis [Recovered/Resolved]
  - Pneumonia [Recovered/Resolved]
  - Feeling abnormal [Recovered/Resolved]
  - Nervousness [None]
  - Irritability [None]
